FAERS Safety Report 6397393-5 (Version None)
Quarter: 2009Q4

REPORT INFORMATION
  Report Type: 
  Country: None (occurrence: None)
  Receive Date: 20091012
  Receipt Date: 20090930
  Transmission Date: 20100525
  Serious: Yes (Other)
  Sender: FDA-Public Use
  Company Number: PHHY2009BR34136

PATIENT
  Age: 78 Year
  Sex: Female
  Weight: 62 kg

DRUGS (6)
  1. ACLASTA [Suspect]
     Indication: OSTEOPOROSIS
     Dosage: UNK
     Dates: start: 20080708
  2. ACLASTA [Suspect]
     Dosage: 5 MG/100 ML
     Dates: start: 20090708
  3. BETASERC [Concomitant]
     Indication: LABYRINTHITIS
     Dosage: 0.5 DF, BID
     Route: 048
     Dates: start: 20081101
  4. BETASERC [Concomitant]
     Indication: VERTIGO
     Dosage: HALF TABLET IN MORNING AND AFTERNOON, ONE TABLET IN NIGHT
     Route: 048
     Dates: start: 20081115, end: 20090301
  5. BETASERC [Concomitant]
     Dosage: 24 MG, BID (ONE TABLET IN MORNING AND AFTERNOON)
  6. STUGERON [Concomitant]
     Indication: LABYRINTHITIS
     Dosage: 75 MG, BID (MORNING AND NIGHT)

REACTIONS (9)
  - DIARRHOEA [None]
  - DIZZINESS [None]
  - GAIT DISTURBANCE [None]
  - LABYRINTHITIS [None]
  - PAIN [None]
  - POLLAKIURIA [None]
  - TINNITUS [None]
  - URINARY INCONTINENCE [None]
  - VERTIGO [None]
